FAERS Safety Report 18766695 (Version 1)
Quarter: 2021Q1

REPORT INFORMATION
  Report Type: Spontaneous
  Country: US (occurrence: US)
  Receive Date: 20210120
  Receipt Date: 20210120
  Transmission Date: 20210419
  Serious: No
  Sender: FDA-Public Use
  Company Number: None

PATIENT
  Sex: Female

DRUGS (1)
  1. ICATIBANT ACETATE SYR 30MG/3ML TEVA PHARMACEUTICALS USA [Suspect]
     Active Substance: ICATIBANT ACETATE
     Indication: COMPLEMENT FACTOR ABNORMAL
     Dosage: ?          OTHER FREQUENCY:AS NEEDED FOR ATTACKS?
     Route: 058
     Dates: start: 201911

REACTIONS (4)
  - Product dose omission issue [None]
  - Drug ineffective [None]
  - Gastric disorder [None]
  - Condition aggravated [None]
